FAERS Safety Report 15655704 (Version 1)
Quarter: 2018Q4

REPORT INFORMATION
  Report Type: Spontaneous
  Country: US (occurrence: US)
  Receive Date: 20181126
  Receipt Date: 20181126
  Transmission Date: 20190205
  Serious: No
  Sender: FDA-Public Use
  Company Number: US-TEVA-2018-US-977624

PATIENT
  Sex: Male

DRUGS (1)
  1. CLONAZEPAM ACTAVIS [Suspect]
     Active Substance: CLONAZEPAM
     Indication: PANIC DISORDER
     Dates: start: 20180802

REACTIONS (5)
  - Lethargy [Unknown]
  - Sluggishness [Unknown]
  - Somnolence [Unknown]
  - Product substitution issue [Unknown]
  - Drug effect increased [Unknown]
